FAERS Safety Report 12580517 (Version 2)
Quarter: 2017Q1

REPORT INFORMATION
  Report Type: Spontaneous
  Country: US (occurrence: US)
  Receive Date: 20160721
  Receipt Date: 20170105
  Transmission Date: 20170428
  Serious: No
  Sender: FDA-Public Use
  Company Number: US-JAZZ-2016-US-001747

PATIENT
  Sex: Female

DRUGS (12)
  1. LEXAPRO [Concomitant]
     Active Substance: ESCITALOPRAM OXALATE
     Dosage: UNK
  2. MIRENA [Concomitant]
     Active Substance: LEVONORGESTREL
     Dosage: UNK
  3. XYREM [Suspect]
     Active Substance: SODIUM OXYBATE
     Indication: NARCOLEPSY
     Dosage: 2.5 G, BID
     Route: 048
     Dates: start: 201207, end: 201207
  4. CLARITIN [Concomitant]
     Active Substance: LORATADINE
     Dosage: UNK
  5. LAMISIL [Concomitant]
     Active Substance: TERBINAFINE HYDROCHLORIDE
     Dosage: UNK
  6. CALCIUM CITRATE + D [Concomitant]
     Dosage: UNK
  7. PROVIGIL [Concomitant]
     Active Substance: MODAFINIL
     Dosage: UNK
  8. LIDOCAINE. [Concomitant]
     Active Substance: LIDOCAINE
     Dosage: UNK
  9. XYREM [Suspect]
     Active Substance: SODIUM OXYBATE
     Indication: CATAPLEXY
     Dosage: DOSE ADJUSTMENTS
     Route: 048
     Dates: start: 201207, end: 201208
  10. BACLOFEN. [Concomitant]
     Active Substance: BACLOFEN
     Dosage: UNK
  11. RITALIN [Concomitant]
     Active Substance: METHYLPHENIDATE HYDROCHLORIDE
     Dosage: UNK
  12. XYREM [Suspect]
     Active Substance: SODIUM OXYBATE
     Dosage: 4.5 G, BID
     Route: 048
     Dates: start: 201208, end: 2015

REACTIONS (1)
  - Neuropathy peripheral [Not Recovered/Not Resolved]
